FAERS Safety Report 11596869 (Version 2)
Quarter: 2015Q4

REPORT INFORMATION
  Report Type: Report from Study
  Country: DE (occurrence: DE)
  Receive Date: 20151006
  Receipt Date: 20151124
  Transmission Date: 20160304
  Serious: Yes (Disabling, Other)
  Sender: FDA-Public Use
  Company Number: DE-ABBVIE-15P-062-1472056-00

PATIENT
  Age: 52 Year
  Sex: Male

DRUGS (2)
  1. EXVIERA [Suspect]
     Active Substance: DASABUVIR
     Indication: HEPATITIS C
     Route: 048
     Dates: start: 20150326, end: 20150618
  2. VIEKIRAX [Suspect]
     Active Substance: OMBITASVIR\PARITAPREVIR\RITONAVIR
     Indication: HEPATITIS C
     Dosage: UNIT DOSE 25/150/100MG
     Route: 048
     Dates: start: 20150326, end: 20150618

REACTIONS (3)
  - Drug resistance [Not Recovered/Not Resolved]
  - Viral load increased [Not Recovered/Not Resolved]
  - Liver function test abnormal [Not Recovered/Not Resolved]

NARRATIVE: CASE EVENT DATE: 20150923
